FAERS Safety Report 6190765-3 (Version None)
Quarter: 2009Q2

REPORT INFORMATION
  Report Type: 
  Country: None (occurrence: None)
  Receive Date: 20090513
  Receipt Date: 20090513
  Transmission Date: 20091009
  Serious: Yes (Other)
  Sender: FDA-Public Use
  Company Number: None

PATIENT
  Age: 59 Year
  Sex: Female
  Weight: 61.2356 kg

DRUGS (1)
  1. CYMBALTA [Suspect]
     Indication: PAIN
     Dosage: EVERY 24HR PO
     Route: 048
     Dates: start: 20090102, end: 20090102

REACTIONS (10)
  - DIARRHOEA [None]
  - DRY MOUTH [None]
  - FEELING ABNORMAL [None]
  - FEELING OF BODY TEMPERATURE CHANGE [None]
  - INCONTINENCE [None]
  - MUSCLE DISORDER [None]
  - NAUSEA [None]
  - SKIN ODOUR ABNORMAL [None]
  - TENDON DISORDER [None]
  - TREMOR [None]
